FAERS Safety Report 18011595 (Version 1)
Quarter: 2020Q3

REPORT INFORMATION
  Report Type: Spontaneous
  Country: US (occurrence: US)
  Receive Date: 20200713
  Receipt Date: 20200713
  Transmission Date: 20201103
  Serious: Yes (Other)
  Sender: FDA-Public Use
  Company Number: US-CIPLA LTD.-2020US04618

PATIENT

DRUGS (1)
  1. DICLOFENAC [Suspect]
     Active Substance: DICLOFENAC
     Indication: ARTHRITIS
     Dosage: UNK
     Route: 061

REACTIONS (5)
  - Rotator cuff syndrome [Unknown]
  - Condition aggravated [Unknown]
  - Exostosis [Unknown]
  - Muscle atrophy [Unknown]
  - Product packaging issue [Unknown]
